FAERS Safety Report 9477562 (Version 3)
Quarter: 2013Q4

REPORT INFORMATION
  Report Type: Report from Study
  Country: US (occurrence: US)
  Receive Date: 20130827
  Receipt Date: 20131031
  Transmission Date: 20140711
  Serious: Yes (Life-Threatening, Hospitalization)
  Sender: FDA-Public Use
  Company Number: US-ACTELION-A-NJ2013-77573

PATIENT
  Age: 70 Year
  Sex: Female

DRUGS (4)
  1. TRACLEER [Suspect]
     Indication: PULMONARY ARTERIAL HYPERTENSION
     Dosage: 125 MG, BID
     Route: 048
     Dates: start: 20120124
  2. ADCIRCA [Concomitant]
  3. ASPIRIN [Concomitant]
  4. TYVASO [Concomitant]
     Dosage: UNK
     Dates: end: 20130616

REACTIONS (6)
  - Thrombosis [Recovered/Resolved]
  - Chest discomfort [Recovered/Resolved]
  - Dyspnoea [Recovered/Resolved]
  - Sinus congestion [Unknown]
  - Fatigue [Unknown]
  - Oedema [Unknown]
